FAERS Safety Report 10512020 (Version 17)
Quarter: 2017Q3

REPORT INFORMATION
  Report Type: Report from Study
  Country: US (occurrence: US)
  Receive Date: 20141010
  Receipt Date: 20170804
  Transmission Date: 20171127
  Serious: Yes (Death, Life-Threatening, Hospitalization, Disabling, Other)
  Sender: FDA-Public Use
  Company Number: US-JNJFOC-20141001994

PATIENT
  Age: 69 Year
  Sex: Female
  Weight: 63 kg

DRUGS (5)
  1. INFLIXIMAB, RECOMBINANT [Suspect]
     Active Substance: INFLIXIMAB
     Indication: PSORIATIC ARTHROPATHY
     Dosage: RECEIVED TOTAL OF 47 INFUSIONS
     Route: 042
     Dates: start: 20071107, end: 20140512
  2. INFLIXIMAB, RECOMBINANT [Suspect]
     Active Substance: INFLIXIMAB
     Indication: PSORIASIS
     Dosage: RECEIVED TOTAL OF 47 INFUSIONS
     Route: 042
     Dates: start: 20071107, end: 20140512
  3. INFLIXIMAB, RECOMBINANT [Suspect]
     Active Substance: INFLIXIMAB
     Indication: PSORIASIS
     Dosage: RECEIVED TOTAL OF 47 INFUSIONS
     Route: 042
     Dates: start: 20071107, end: 20140512
  4. SERTRALINE [Concomitant]
     Active Substance: SERTRALINE HYDROCHLORIDE
     Indication: DEPRESSION
     Route: 065
     Dates: start: 201405, end: 201411
  5. EXELON [Concomitant]
     Active Substance: RIVASTIGMINE TARTRATE
     Indication: DEMENTIA
     Dosage: 4-6 MG PER DAY
     Route: 065
     Dates: start: 201405, end: 201411

REACTIONS (4)
  - Parkinson^s disease [Not Recovered/Not Resolved]
  - Dementia with Lewy bodies [Not Recovered/Not Resolved]
  - Orthostatic hypotension [Recovered/Resolved]
  - Diffuse large B-cell lymphoma stage III [Fatal]

NARRATIVE: CASE EVENT DATE: 20130326
